FAERS Safety Report 5227799-9 (Version None)
Quarter: 2007Q1

REPORT INFORMATION
  Report Type: 
  Country: None (occurrence: None)
  Receive Date: 20070202
  Receipt Date: 20070123
  Transmission Date: 20070707
  Serious: Yes (Other)
  Sender: FDA-Public Use
  Company Number: US-PFIZER INC-2007006987

PATIENT
  Sex: Male
  Weight: 83.9 kg

DRUGS (9)
  1. LYRICA [Suspect]
     Indication: TRIGEMINAL NEURALGIA
     Dates: start: 20070104, end: 20070104
  2. INSULIN [Concomitant]
  3. KEPPRA [Concomitant]
  4. MEXILETINE HYDROCHLORIDE [Concomitant]
  5. METOPROLOL TARTRATE [Concomitant]
  6. NIFEDIPINE [Concomitant]
  7. GLUCOPHAGE [Concomitant]
  8. ASPIRIN [Concomitant]
  9. PRILOSEC [Concomitant]

REACTIONS (3)
  - ABASIA [None]
  - CONFUSIONAL STATE [None]
  - SOMNOLENCE [None]
